FAERS Safety Report 12728221 (Version 1)
Quarter: 2016Q3

REPORT INFORMATION
  Report Type: Spontaneous
  Country: US (occurrence: US)
  Receive Date: 20160907
  Receipt Date: 20160907
  Transmission Date: 20161109
  Serious: Yes (Death)
  Sender: FDA-Public Use
  Company Number: None

PATIENT
  Age: 68 Year
  Sex: Male
  Weight: 87.9 kg

DRUGS (1)
  1. CRIZOTINIB [Suspect]
     Active Substance: CRIZOTINIB
     Indication: LUNG NEOPLASM MALIGNANT
     Route: 048

REACTIONS (6)
  - Cardiac arrest [None]
  - Electrocardiogram abnormal [None]
  - Pulmonary toxicity [None]
  - Pneumonitis [None]
  - Hypoxia [None]
  - Cardio-respiratory arrest [None]

NARRATIVE: CASE EVENT DATE: 20160419
